FAERS Safety Report 16873851 (Version 1)
Quarter: 2019Q4

REPORT INFORMATION
  Report Type: Spontaneous
  Country: JP (occurrence: JP)
  Receive Date: 20191001
  Receipt Date: 20191001
  Transmission Date: 20200122
  Serious: Yes (Hospitalization, Other)
  Sender: FDA-Public Use
  Company Number: JP-SCIEGEN PHARMACEUTICALS INC-2019SCILIT00277

PATIENT
  Age: 7 Decade
  Sex: Male

DRUGS (3)
  1. CLOPIDOGREL [Suspect]
     Active Substance: CLOPIDOGREL BISULFATE
  2. PREDNISOLONE. [Interacting]
     Active Substance: PREDNISOLONE
  3. ASPIRIN. [Suspect]
     Active Substance: ASPIRIN

REACTIONS (3)
  - Conjunctival haemorrhage [Unknown]
  - Factor V deficiency [Unknown]
  - Haemorrhage subcutaneous [Recovered/Resolved]
